FAERS Safety Report 4902068-2 (Version None)
Quarter: 2006Q1

REPORT INFORMATION
  Report Type: 
  Country: None (occurrence: None)
  Receive Date: 20060206
  Receipt Date: 20060203
  Transmission Date: 20060701
  Serious: Yes (Hospitalization)
  Sender: FDA-Public Use
  Company Number: US-GLAXOSMITHKLINE-A0592292A

PATIENT
  Age: 44 Year
  Sex: Female

DRUGS (8)
  1. BUPROPION HYDROCHLORIDE [Suspect]
     Indication: DEPRESSION
     Dosage: 100MG TWICE PER DAY
     Route: 048
  2. WELLBUTRIN [Suspect]
     Indication: DEPRESSION
     Dosage: 100MG TWICE PER DAY
     Route: 048
  3. LASIX [Concomitant]
  4. SEROQUEL [Concomitant]
  5. XANAX [Concomitant]
  6. GLUCOPHAGE [Concomitant]
  7. MECLIZINE [Concomitant]
  8. NEXIUM [Concomitant]

REACTIONS (2)
  - HYPERSENSITIVITY [None]
  - SUICIDAL IDEATION [None]
